FAERS Safety Report 21733325 (Version 2)
Quarter: 2022Q4

REPORT INFORMATION
  Report Type: Report from Study
  Country: CA (occurrence: CA)
  Receive Date: 20221215
  Receipt Date: 20221229
  Transmission Date: 20230113
  Serious: Yes (Other)
  Sender: FDA-Public Use
  Company Number: CA-CELLTRION INC.-2022CA020790

PATIENT

DRUGS (8)
  1. TRUXIMA [Suspect]
     Active Substance: RITUXIMAB-ABBS
     Indication: Rheumatoid arthritis
     Dosage: 1000 MG, FREQUENCY: DAY 1 + 15
     Route: 042
     Dates: start: 20220518
  2. PANTOPRAZOLE [Concomitant]
     Active Substance: PANTOPRAZOLE
     Dosage: UNK
  3. QUINAPRIL [Concomitant]
     Active Substance: QUINAPRIL
     Dosage: UNK
  4. PREDNISONE [Concomitant]
     Active Substance: PREDNISONE
     Dosage: UNK
  5. ZOPICLONE [Concomitant]
     Active Substance: ZOPICLONE
     Dosage: UNK
  6. DIPHENHYDRAMINE HYDROCHLORIDE [Concomitant]
     Active Substance: DIPHENHYDRAMINE HYDROCHLORIDE
     Indication: Premedication
  7. ACETAMINOPHEN [Concomitant]
     Active Substance: ACETAMINOPHEN
     Indication: Premedication
  8. METHYLPREDNISOLONE [Concomitant]
     Active Substance: METHYLPREDNISOLONE
     Indication: Premedication

REACTIONS (3)
  - SARS-CoV-2 test positive [Unknown]
  - Rheumatoid arthritis [Unknown]
  - Product dose omission issue [Unknown]

NARRATIVE: CASE EVENT DATE: 20221130
